FAERS Safety Report 10404395 (Version 4)
Quarter: 2014Q3

REPORT INFORMATION
  Report Type: Spontaneous
  Country: VE (occurrence: VE)
  Receive Date: 20140823
  Receipt Date: 20140916
  Transmission Date: 20150326
  Serious: Yes (Disabling, Other)
  Sender: FDA-Public Use
  Company Number: PHHY2014VE105014

PATIENT
  Sex: Male

DRUGS (9)
  1. TRILEPTAL [Suspect]
     Active Substance: OXCARBAZEPINE
     Indication: PITUITARY TUMOUR
  2. EUTIROX [Concomitant]
     Active Substance: LEVOTHYROXINE SODIUM
     Indication: OBESITY
     Dosage: 1 U, DAILY
     Dates: end: 2014
  3. PARLODEL [Suspect]
     Active Substance: BROMOCRIPTINE MESYLATE
     Indication: OFF LABEL USE
  4. ZYPREXA [Concomitant]
     Active Substance: OLANZAPINE
     Indication: AGGRESSION
  5. ZYPREXA [Concomitant]
     Active Substance: OLANZAPINE
     Indication: DECREASED APPETITE
     Dosage: 20 MG, DAILY
     Dates: end: 2014
  6. PARLODEL [Suspect]
     Active Substance: BROMOCRIPTINE MESYLATE
     Indication: PITUITARY TUMOUR
     Dosage: 2.5 MG, DAILY
     Route: 048
     Dates: start: 2013, end: 201407
  7. PARLODEL [Suspect]
     Active Substance: BROMOCRIPTINE MESYLATE
     Indication: MENTAL DISORDER
  8. TRILEPTAL [Suspect]
     Active Substance: OXCARBAZEPINE
     Indication: MENTAL DISORDER
     Dosage: 1200 MG, DAILY
     Route: 048
  9. TRILEPTAL [Suspect]
     Active Substance: OXCARBAZEPINE
     Indication: OFF LABEL USE

REACTIONS (9)
  - General physical health deterioration [Unknown]
  - Pituitary tumour recurrent [Recovering/Resolving]
  - Malaise [Unknown]
  - Tachycardia [Unknown]
  - Impaired self-care [Unknown]
  - Mental disorder [Recovering/Resolving]
  - Weight decreased [Unknown]
  - Asthenia [Unknown]
  - Blindness [Unknown]
